FAERS Safety Report 15459114 (Version 2)
Quarter: 2018Q4

REPORT INFORMATION
  Report Type: Spontaneous
  Country: US (occurrence: US)
  Receive Date: 20181003
  Receipt Date: 20181213
  Transmission Date: 20190204
  Serious: No
  Sender: FDA-Public Use
  Company Number: US-SA-2018SA270781

PATIENT
  Age: 66 Year
  Sex: Male
  Weight: 72.56 kg

DRUGS (9)
  1. PRALUENT [Suspect]
     Active Substance: ALIROCUMAB
     Indication: HYPERLIPIDAEMIA
  2. PRALUENT [Suspect]
     Active Substance: ALIROCUMAB
     Indication: CARDIOVASCULAR EVENT PROPHYLAXIS
     Dosage: 75 MG, QOW
     Dates: start: 201809
  3. TURMERIC [CURCUMA LONGA] [Concomitant]
  4. MULTIVITAMINS [VITAMINS NOS] [Concomitant]
     Active Substance: VITAMINS
  5. LISINOPRIL. [Concomitant]
     Active Substance: LISINOPRIL
  6. ASPIRIN 81 [Concomitant]
     Active Substance: ASPIRIN
     Dosage: UNK
  7. OMEGA 3 [DOCOSAHEXAENOIC ACID;EICOSAPENTAENOIC ACID] [Concomitant]
     Dosage: UNK
  8. BRILINTA [Concomitant]
     Active Substance: TICAGRELOR
  9. AMOXICILLIN CLAVULANIC ACID [Concomitant]
     Active Substance: AMOXICILLIN\CLAVULANIC ACID

REACTIONS (6)
  - Muscle spasms [Recovering/Resolving]
  - Neck pain [Recovered/Resolved]
  - Sleep disorder [Unknown]
  - Musculoskeletal pain [Recovered/Resolved]
  - Arthralgia [Recovered/Resolved]
  - Pain in extremity [Recovered/Resolved]

NARRATIVE: CASE EVENT DATE: 201809
